FAERS Safety Report 4955993-0 (Version None)
Quarter: 2006Q1

REPORT INFORMATION
  Report Type: 
  Country: None (occurrence: None)
  Receive Date: 20060328
  Receipt Date: 20051021
  Transmission Date: 20060701
  Serious: Yes (Hospitalization, Other)
  Sender: FDA-Public Use
  Company Number: US-MERCK-0510USA08805

PATIENT
  Age: 66 Year
  Sex: Male
  Weight: 78 kg

DRUGS (10)
  1. VIOXX [Suspect]
     Indication: ARTHRITIS
     Route: 048
     Dates: start: 20001226, end: 20020418
  2. VIOXX [Suspect]
     Route: 048
     Dates: start: 20020601, end: 20040930
  3. VIOXX [Suspect]
     Indication: OSTEOARTHRITIS
     Route: 048
     Dates: start: 20001226, end: 20020418
  4. VIOXX [Suspect]
     Route: 048
     Dates: start: 20020601, end: 20040930
  5. INDERAL [Concomitant]
     Indication: HYPERTENSION
     Route: 065
  6. ASPIRIN [Concomitant]
     Indication: CEREBROVASCULAR ACCIDENT PROPHYLAXIS
     Route: 065
     Dates: start: 19990608
  7. LOPID [Concomitant]
     Indication: BLOOD CHOLESTEROL
     Route: 065
     Dates: start: 19990101
  8. MOTRIN [Concomitant]
     Route: 065
  9. NAPROXEN [Concomitant]
     Route: 065
  10. ELAVIL [Concomitant]
     Indication: PAIN
     Route: 065
     Dates: start: 19991011

REACTIONS (52)
  - ABSCESS [None]
  - ACCELERATED HYPERTENSION [None]
  - AMNESIA [None]
  - ANAEMIA OF CHRONIC DISEASE [None]
  - ANEURYSM [None]
  - ANGIONEUROTIC OEDEMA [None]
  - ANXIETY [None]
  - AORTIC ARTERIOSCLEROSIS [None]
  - ARTERIOSCLEROSIS [None]
  - BARRETT'S OESOPHAGUS [None]
  - BLOOD CHOLESTEROL INCREASED [None]
  - BRONCHITIS [None]
  - CARDIAC DISORDER [None]
  - CARDIAC FAILURE CONGESTIVE [None]
  - CAROTID ARTERY STENOSIS [None]
  - CEREBRAL ARTERY THROMBOSIS [None]
  - CEREBROVASCULAR ACCIDENT [None]
  - CONVULSION [None]
  - CORONARY ARTERY STENOSIS [None]
  - DEHYDRATION [None]
  - DYSPHAGIA [None]
  - DYSPNOEA EXERTIONAL [None]
  - FIBROSIS [None]
  - FOREIGN BODY ASPIRATION [None]
  - GASTROOESOPHAGEAL REFLUX DISEASE [None]
  - HAEMOPTYSIS [None]
  - HERPES SIMPLEX [None]
  - HIATUS HERNIA [None]
  - HYPERKALAEMIA [None]
  - HYPERTENSION [None]
  - HYPERTENSIVE HEART DISEASE [None]
  - HYPONATRAEMIA [None]
  - LUNG CONSOLIDATION [None]
  - LUNG DISORDER [None]
  - MENTAL STATUS CHANGES [None]
  - OEDEMA PERIPHERAL [None]
  - OESOPHAGEAL CANDIDIASIS [None]
  - OESOPHAGEAL CARCINOMA [None]
  - ORTHOPNOEA [None]
  - OSTEOARTHRITIS [None]
  - PLEURAL EFFUSION [None]
  - PNEUMONIA [None]
  - PULMONARY MASS [None]
  - RENAL FAILURE [None]
  - RHINITIS ALLERGIC [None]
  - SINUS DISORDER [None]
  - SWELLING FACE [None]
  - SYNCOPE [None]
  - SYSTOLIC HYPERTENSION [None]
  - THROAT CANCER [None]
  - TONGUE NEOPLASM MALIGNANT STAGE UNSPECIFIED [None]
  - TRANSIENT ISCHAEMIC ATTACK [None]
